FAERS Safety Report 9266193 (Version 3)
Quarter: 2013Q3

REPORT INFORMATION
  Report Type: Spontaneous
  Country: JP (occurrence: JP)
  Receive Date: 20130502
  Receipt Date: 20130830
  Transmission Date: 20140515
  Serious: Yes (Life-Threatening, Other)
  Sender: FDA-Public Use
  Company Number: JP-009507513-1305JPN000044

PATIENT
  Age: 24 Year
  Sex: Female

DRUGS (16)
  1. REFLEX [Suspect]
     Indication: DEPRESSION
     Dosage: 45 MG, QD
     Route: 048
     Dates: start: 20120209
  2. REFLEX [Suspect]
     Indication: INSOMNIA
     Dosage: 990 MG, DAILY
     Route: 048
     Dates: start: 20130116, end: 20130116
  3. CONTOMIN [Suspect]
     Indication: AGGRESSION
     Dosage: UNK UNK, QD
     Route: 048
  4. CONTOMIN [Suspect]
     Dosage: 3000 MG, DAILY
     Route: 048
     Dates: start: 20130116, end: 20130116
  5. SOLANAX [Concomitant]
     Indication: ANXIETY
     Dosage: 2.4 MG, QD
     Route: 048
  6. RIVOTRIL [Concomitant]
     Indication: ANXIETY
     Dosage: 8 MG, QD
     Route: 048
  7. PAXIL [Concomitant]
     Indication: DEPRESSION
     Dosage: 15 MG, QD
     Route: 048
  8. MYSLEE [Concomitant]
     Indication: INSOMNIA
     Dosage: 20 MG, QD
     Route: 048
  9. MYSLEE [Concomitant]
     Dosage: 200 MG,DAILY
     Route: 048
     Dates: start: 20130116, end: 20130116
  10. MYSLEE [Concomitant]
     Dosage: 20 MG, QD
     Route: 048
  11. ERIMIN [Concomitant]
     Indication: INSOMNIA
     Dosage: 10 MG, QD
     Route: 048
  12. ROHYPNOL [Concomitant]
     Indication: INSOMNIA
     Dosage: 4 MG, QD
     Route: 048
  13. ROHYPNOL [Concomitant]
     Dosage: 40 MG, DAILY
     Route: 048
     Dates: start: 20130116, end: 20130116
  14. ROHYPNOL [Concomitant]
     Dosage: 4 MG, QD
     Route: 048
  15. VEGETAMIN [Concomitant]
     Indication: INSOMNIA
     Dosage: 1 TABLET, QD
     Route: 048
  16. RISPERDAL [Concomitant]
     Indication: IRRITABILITY
     Dosage: 3 ML, PRN
     Route: 048

REACTIONS (3)
  - Cardiac arrest [Recovered/Resolved]
  - Suicide attempt [Unknown]
  - Altered state of consciousness [Recovered/Resolved]
